FAERS Safety Report 10657626 (Version 1)
Quarter: 2014Q4

REPORT INFORMATION
  Report Type: Spontaneous
  Country: US (occurrence: None)
  Receive Date: 20141205
  Receipt Date: 20141205
  Transmission Date: 20150529
  Serious: Yes (Other)
  Sender: FDA-Public Use
  Company Number: USA-2014102539

PATIENT
  Age: 55 Year
  Sex: Female
  Weight: 68.04 kg

DRUGS (3)
  1. DEXAMETHASONE (DEXAMETHASONE) (UNKNOWN) [Concomitant]
     Active Substance: DEXAMETHASONE
  2. VENLAFAXINE HCL (VENLAFAXINE HYDROCHLORIDE) (UNKNOWN) [Concomitant]
  3. POMALYST [Suspect]
     Active Substance: POMALIDOMIDE
     Indication: PLASMA CELL MYELOMA
     Route: 048
     Dates: start: 20140604

REACTIONS (4)
  - Ocular hyperaemia [None]
  - Eye discharge [None]
  - Dry eye [None]
  - Eye pruritus [None]

NARRATIVE: CASE EVENT DATE: 2014
